FAERS Safety Report 23899093 (Version 1)
Quarter: 2024Q2

REPORT INFORMATION
  Report Type: Spontaneous
  Country: IN (occurrence: IN)
  Receive Date: 20240526
  Receipt Date: 20240526
  Transmission Date: 20240716
  Serious: Yes (Other)
  Sender: FDA-Public Use
  Company Number: IN-GLENMARK PHARMACEUTICALS-2024GMK090968

PATIENT

DRUGS (8)
  1. TACROLIMUS [Suspect]
     Active Substance: TACROLIMUS
     Indication: Immunosuppressant drug therapy
     Dosage: 0.1 MILLIGRAM PER KILOGRAM
     Route: 065
  2. TACROLIMUS [Suspect]
     Active Substance: TACROLIMUS
     Dosage: 3.5 MILLIGRAM, OD
     Route: 065
  3. TACROLIMUS [Suspect]
     Active Substance: TACROLIMUS
     Dosage: 3 MILLIGRAM, OD
     Route: 065
  4. TACROLIMUS [Suspect]
     Active Substance: TACROLIMUS
     Dosage: 2.5 MILLIGRAM, OD, PROLONGED RELEASE FORMULATION
     Route: 065
  5. MYCOPHENOLATE MOFETIL [Concomitant]
     Active Substance: MYCOPHENOLATE MOFETIL
     Indication: Immunosuppressant drug therapy
     Dosage: 600 MILLIGRAM PER SQUARE METRE
     Route: 065
  6. AMPHOTERICIN B [Concomitant]
     Active Substance: AMPHOTERICIN B
     Indication: Candida infection
     Dosage: UNK
     Route: 042
  7. FLUCONAZOLE [Concomitant]
     Active Substance: FLUCONAZOLE
     Indication: Candida infection
     Dosage: UNK
     Route: 048
  8. BASILIXIMAB [Concomitant]
     Active Substance: BASILIXIMAB
     Indication: Immunosuppressant drug therapy
     Route: 065

REACTIONS (4)
  - Renal salt-wasting syndrome [Recovered/Resolved]
  - Hyponatraemic seizure [Recovered/Resolved]
  - Toxicity to various agents [Recovered/Resolved]
  - Hyponatraemia [Recovered/Resolved]
